FAERS Safety Report 8341784-X (Version None)
Quarter: 2012Q2

REPORT INFORMATION
  Report Type: 
  Country: None (occurrence: None)
  Receive Date: 20120507
  Receipt Date: 20120423
  Transmission Date: 20120825
  Serious: Yes (Hospitalization, Other)
  Sender: FDA-Public Use
  Company Number: AR-INCYTE CORPORATION-2012IN000742

PATIENT
  Sex: Male

DRUGS (4)
  1. THALIDOMIDE [Concomitant]
  2. VITAMIN B COMPLEX CAP [Concomitant]
  3. INC424 [Suspect]
     Indication: MYELOFIBROSIS
     Dosage: 10 MG, BID
     Route: 048
     Dates: start: 20110901
  4. RED BLOOD CELLS [Concomitant]

REACTIONS (2)
  - ACUTE CORONARY SYNDROME [None]
  - ATRIAL FIBRILLATION [None]
